FAERS Safety Report 19242728 (Version 1)
Quarter: 2021Q2

REPORT INFORMATION
  Report Type: Spontaneous
  Country: CN (occurrence: CN)
  Receive Date: 20210510
  Receipt Date: 20210510
  Transmission Date: 20210717
  Serious: Yes (Death, Life-Threatening, Hospitalization)
  Sender: FDA-Public Use
  Company Number: CN-BAXTER-2021BAX009890

PATIENT
  Age: 70 Year
  Sex: Male
  Weight: 65 kg

DRUGS (10)
  1. BORTEZOMIB. [Suspect]
     Active Substance: BORTEZOMIB
     Dosage: BORTEZOMIB 2.2 MG + 0.9% SODIUM CHLORIDE 1ML
     Route: 041
     Dates: start: 20210421, end: 20210421
  2. 0.9% SODIUM CHLORIDE INJECTION [Suspect]
     Active Substance: SODIUM CHLORIDE
     Indication: MEDICATION DILUTION
     Dosage: CYCLOPHOSPHAMIDE 0.5G + 0.9% SODIUM CHLORIDE 100ML
     Route: 041
     Dates: start: 20210418, end: 20210418
  3. 0.9% SODIUM CHLORIDE INJECTION [Suspect]
     Active Substance: SODIUM CHLORIDE
     Dosage: BORTEZOMIB 2.2 MG + 0.9% SODIUM CHLORIDE 1ML
     Route: 041
     Dates: start: 20210421, end: 20210421
  4. 0.9% SODIUM CHLORIDE INJECTION [Suspect]
     Active Substance: SODIUM CHLORIDE
     Dosage: BORTEZOMIB 2.2 MG + 0.9% SODIUM CHLORIDE 1ML
     Route: 041
     Dates: start: 20210425, end: 20210425
  5. BORTEZOMIB. [Suspect]
     Active Substance: BORTEZOMIB
     Indication: PLASMA CELL MYELOMA
     Dosage: BORTEZOMIB 2.2 MG + 0.9% SODIUM CHLORIDE 1ML
     Route: 041
     Dates: start: 20210418, end: 20210418
  6. ENDOXAN [Suspect]
     Active Substance: CYCLOPHOSPHAMIDE
     Indication: PLASMA CELL MYELOMA
     Dosage: CYCLOPHOSPHAMIDE 0.5G + 0.9% SODIUM CHLORIDE 100ML
     Route: 041
     Dates: start: 20210418, end: 20210418
  7. ENDOXAN [Suspect]
     Active Substance: CYCLOPHOSPHAMIDE
     Dosage: CYCLOPHOSPHAMIDE 0.5 G + 0.9% SODIUM CHLORIDE 100ML
     Route: 041
     Dates: start: 20210425, end: 20210425
  8. 0.9% SODIUM CHLORIDE INJECTION [Suspect]
     Active Substance: SODIUM CHLORIDE
     Dosage: CYCLOPHOSPHAMIDE 0.5G + 0.9% SODIUM CHLORIDE 100ML
     Route: 041
     Dates: start: 20210425, end: 20210425
  9. 0.9% SODIUM CHLORIDE INJECTION [Suspect]
     Active Substance: SODIUM CHLORIDE
     Dosage: BORTEZOMIB 2.2 MG + 0.9% SODIUM CHLORIDE 1ML
     Route: 041
     Dates: start: 20210418, end: 20210418
  10. BORTEZOMIB. [Suspect]
     Active Substance: BORTEZOMIB
     Dosage: BORTEZOMIB 2.2 MG + 0.9% SODIUM CHLORIDE 1ML
     Route: 041
     Dates: start: 20210425, end: 20210425

REACTIONS (2)
  - Myelosuppression [Unknown]
  - Death [Fatal]

NARRATIVE: CASE EVENT DATE: 202104
